FAERS Safety Report 5424096-3 (Version None)
Quarter: 2007Q3

REPORT INFORMATION
  Report Type: 
  Country: None (occurrence: None)
  Receive Date: 20070727
  Receipt Date: 20060119
  Transmission Date: 20080115
  Serious: Yes (Hospitalization, Other)
  Sender: FDA-Public Use
  Company Number: THYM-10833

PATIENT
  Age: 59 Year
  Sex: Male
  Weight: 68.8 kg

DRUGS (4)
  1. THYMOGLOBULIN [Suspect]
     Indication: CORD BLOOD TRANSPLANT THERAPY
     Dates: start: 20041015, end: 20041021
  2. ATIVAN [Concomitant]
  3. CIPROFLOXACIN [Concomitant]
  4. ACYCLOVIR [Concomitant]

REACTIONS (2)
  - ENCEPHALITIS [None]
  - HUMAN HERPESVIRUS 6 INFECTION [None]
